FAERS Safety Report 18198503 (Version 1)
Quarter: 2020Q3

REPORT INFORMATION
  Report Type: Spontaneous
  Country: LK (occurrence: LK)
  Receive Date: 20200826
  Receipt Date: 20200826
  Transmission Date: 20201103
  Serious: Yes (Hospitalization)
  Sender: FDA-Public Use
  Company Number: LK-AMNEAL PHARMACEUTICALS-2020-AMRX-02566

PATIENT
  Sex: Male

DRUGS (4)
  1. VANCOMYCIN [Concomitant]
     Active Substance: VANCOMYCIN
     Indication: ENDOCARDITIS STAPHYLOCOCCAL
     Dosage: 1 GRAM, 2X/DAY
     Route: 042
  2. LINEZOLID. [Suspect]
     Active Substance: LINEZOLID
     Indication: ENDOCARDITIS STAPHYLOCOCCAL
     Dosage: 600 MILLIGRAM, 2X/DAY
     Route: 042
  3. NORADRENALINE [NOREPINEPHRINE] [Concomitant]
     Active Substance: NOREPINEPHRINE
     Indication: SINUS TACHYCARDIA
     Dosage: 0.1 MICROGRAM/KILOGRAM, EVERY MIN
     Route: 042
  4. RIFAMPICIN [Concomitant]
     Active Substance: RIFAMPIN
     Indication: ENDOCARDITIS STAPHYLOCOCCAL
     Dosage: UNK
     Route: 065

REACTIONS (2)
  - Rhabdomyolysis [Recovered/Resolved]
  - Acute kidney injury [Recovered/Resolved]
